FAERS Safety Report 4312171-6 (Version None)
Quarter: 2004Q1

REPORT INFORMATION
  Report Type: 
  Country: None (occurrence: None)
  Receive Date: 20040303
  Receipt Date: 20040226
  Transmission Date: 20041129
  Serious: Yes (Life-Threatening)
  Sender: FDA-Public Use
  Company Number: 2004200937US

PATIENT
  Sex: Female

DRUGS (1)
  1. CELEBREX [Suspect]
     Indication: CARCINOMA
     Dosage: 200 MG, BID
     Dates: start: 20030901

REACTIONS (1)
  - NEOPLASM GROWTH ACCELERATED [None]
